FAERS Safety Report 5892467-7 (Version None)
Quarter: 2008Q3

REPORT INFORMATION
  Report Type: 
  Country: None (occurrence: None)
  Receive Date: 20080923
  Receipt Date: 20080911
  Transmission Date: 20090109
  Serious: Yes (Other)
  Sender: FDA-Public Use
  Company Number: US-JNJFOC-20061003409

PATIENT
  Sex: Female
  Weight: 108.86 kg

DRUGS (4)
  1. RISPERDAL [Suspect]
     Indication: PSYCHOTIC DISORDER
  2. OLANZAPINE [Suspect]
  3. OLANZAPINE [Suspect]
     Indication: PSYCHOTIC DISORDER
  4. LEVOTHYROXINE SODIUM [Concomitant]

REACTIONS (3)
  - DIABETES MELLITUS [None]
  - ELECTROCARDIOGRAM QT PROLONGED [None]
  - WEIGHT INCREASED [None]
